FAERS Safety Report 8125154-5 (Version None)
Quarter: 2012Q1

REPORT INFORMATION
  Report Type: 
  Country: None (occurrence: None)
  Receive Date: 20120209
  Receipt Date: 20120206
  Transmission Date: 20120608
  Serious: Yes (Hospitalization)
  Sender: FDA-Public Use
  Company Number: CA-AMGEN-CANCT2012007765

PATIENT
  Age: 29 Year
  Sex: Female

DRUGS (1)
  1. ETANERCEPT [Suspect]
     Indication: PSORIASIS
     Dosage: UNK UNK, 2 TIMES/WK
     Route: 058
     Dates: start: 20111026

REACTIONS (1)
  - ABDOMINAL PAIN [None]
